FAERS Safety Report 10747618 (Version 1)
Quarter: 2015Q1

REPORT INFORMATION
  Report Type: Spontaneous
  Country: US (occurrence: US)
  Receive Date: 20150129
  Receipt Date: 20150129
  Transmission Date: 20150721
  Serious: No
  Sender: FDA-Public Use
  Company Number: US-TEVA-485093USA

PATIENT

DRUGS (1)
  1. METFORMIN [Suspect]
     Active Substance: METFORMIN HYDROCHLORIDE

REACTIONS (6)
  - Dry skin [Unknown]
  - Drug ineffective [Unknown]
  - Blood glucose increased [Unknown]
  - Skin exfoliation [Unknown]
  - Rash [Unknown]
  - Rash papular [Unknown]

NARRATIVE: CASE EVENT DATE: 201402
